FAERS Safety Report 8594411-0 (Version None)
Quarter: 2012Q3

REPORT INFORMATION
  Report Type: 
  Country: None (occurrence: None)
  Receive Date: 20120815
  Receipt Date: 20120806
  Transmission Date: 20120928
  Serious: No
  Sender: FDA-Public Use
  Company Number: US-BIOGENIDEC-2012BI021706

PATIENT
  Age: 52 Year
  Sex: Female

DRUGS (1)
  1. AVONEX [Suspect]
     Indication: MULTIPLE SCLEROSIS
     Route: 030
     Dates: start: 20120612

REACTIONS (7)
  - VISION BLURRED [None]
  - SKIN MASS [None]
  - DYSPHEMIA [None]
  - RASH PAPULAR [None]
  - PARAESTHESIA ORAL [None]
  - INFLUENZA LIKE ILLNESS [None]
  - BLOOD PRESSURE INCREASED [None]
